FAERS Safety Report 6173180-8 (Version None)
Quarter: 2009Q2

REPORT INFORMATION
  Report Type: 
  Country: None (occurrence: None)
  Receive Date: 20090430
  Receipt Date: 20090421
  Transmission Date: 20091009
  Serious: Yes (Death)
  Sender: FDA-Public Use
  Company Number: CN-PFIZER INC-2009203480

PATIENT

DRUGS (3)
  1. CEFOPERAZONE SODIUM, SULBACTAM SODIUM [Suspect]
     Indication: BRONCHITIS
     Route: 042
  2. DEXAMETHASONE [Concomitant]
     Dosage: UNK
     Route: 042
  3. SODIUM CHLORIDE [Concomitant]
     Dosage: UNK

REACTIONS (3)
  - CYANOSIS [None]
  - DYSPNOEA [None]
  - LOSS OF CONSCIOUSNESS [None]
